FAERS Safety Report 8538846-0 (Version None)
Quarter: 2012Q3

REPORT INFORMATION
  Report Type: 
  Country: None (occurrence: None)
  Receive Date: 20120726
  Receipt Date: 20120720
  Transmission Date: 20120928
  Serious: Yes (Hospitalization)
  Sender: FDA-Public Use
  Company Number: AU-AMGEN-AUSCT2012045158

PATIENT
  Age: 66 Year
  Sex: Male

DRUGS (10)
  1. SENSIPAR [Suspect]
     Dosage: 90 MG, UNK
     Dates: start: 20120606, end: 20120720
  2. PLACEBO [Suspect]
     Indication: HYPERPARATHYROIDISM SECONDARY
     Dosage: UNK UNK, QD
     Route: 048
     Dates: start: 20120117, end: 20120508
  3. OMEPRAZOLE [Concomitant]
  4. PREDNISONE [Concomitant]
  5. CLOPIDOGREL [Concomitant]
  6. CELLCEPT [Concomitant]
  7. ASPIRIN [Concomitant]
  8. SENSIPAR [Suspect]
     Indication: HYPERPARATHYROIDISM SECONDARY
     Dosage: 30 MG, QD
     Dates: start: 20120508, end: 20120521
  9. SENSIPAR [Suspect]
     Dosage: 60 MG, UNK
     Dates: start: 20120522
  10. TACROLIMUS [Concomitant]

REACTIONS (1)
  - ABDOMINAL PAIN [None]
